FAERS Safety Report 7815225-2 (Version None)
Quarter: 2011Q4

REPORT INFORMATION
  Report Type: 
  Country: None (occurrence: None)
  Receive Date: 20111014
  Receipt Date: 20111006
  Transmission Date: 20120403
  Serious: Yes (Disabling)
  Sender: FDA-Public Use
  Company Number: US-BAYER-2011-096192

PATIENT
  Sex: Female

DRUGS (1)
  1. CIPROFLOXACIN [Suspect]
     Dosage: UNK

REACTIONS (3)
  - FLOATING PATELLA [None]
  - PAIN IN EXTREMITY [None]
  - OEDEMA PERIPHERAL [None]
